FAERS Safety Report 18018027 (Version 1)
Quarter: 2020Q3

REPORT INFORMATION
  Report Type: Spontaneous
  Country: US (occurrence: US)
  Receive Date: 20200713
  Receipt Date: 20200713
  Transmission Date: 20201103
  Serious: No
  Sender: FDA-Public Use
  Company Number: None

PATIENT
  Sex: Female

DRUGS (8)
  1. HYDRALAZINE [Suspect]
     Active Substance: HYDRALAZINE HYDROCHLORIDE
     Dosage: ?          OTHER FREQUENCY:EVERY 8 HRS/30 DAY;?
     Route: 048
  2. CARVEDILOL 12.5MG [Suspect]
     Active Substance: CARVEDILOL
     Route: 048
  3. ELIQUIS [Suspect]
     Active Substance: APIXABAN
     Route: 048
  4. TAMSULOSIN 0.4MG [Suspect]
     Active Substance: TAMSULOSIN
     Route: 048
  5. LASIX [Suspect]
     Active Substance: FUROSEMIDE
     Route: 048
  6. ATORVASTATIN 20MG [Suspect]
     Active Substance: ATORVASTATIN
     Route: 048
  7. ENTRESTO [Suspect]
     Active Substance: SACUBITRIL\VALSARTAN
     Dosage: ?          OTHER DOSE:97?103MG;?
     Route: 048
  8. CEFDINIR 300MG [Suspect]
     Active Substance: CEFDINIR
     Dosage: ?          OTHER FREQUENCY:12 HRS FOR 2 DAYS;?
     Route: 048

REACTIONS (3)
  - Product dispensing error [None]
  - Transcription medication error [None]
  - Wrong product administered [None]

NARRATIVE: CASE EVENT DATE: 2020
